FAERS Safety Report 17576796 (Version 1)
Quarter: 2020Q1

REPORT INFORMATION
  Report Type: Spontaneous
  Country: US (occurrence: US)
  Receive Date: 20200324
  Receipt Date: 20200324
  Transmission Date: 20200409
  Serious: Yes (Other)
  Sender: FDA-Public Use
  Company Number: US-ACORDA-ACO_164137_2020

PATIENT
  Age: 74 Year
  Sex: Male
  Weight: 61.22 kg

DRUGS (3)
  1. INBRIJA [Suspect]
     Active Substance: LEVODOPA
     Indication: ON AND OFF PHENOMENON
  2. EFFEXOR [Concomitant]
     Active Substance: VENLAFAXINE HYDROCHLORIDE
     Indication: PRODUCT USED FOR UNKNOWN INDICATION
     Dosage: 240 MILLIGRAM, QD
     Route: 048
  3. INBRIJA [Suspect]
     Active Substance: LEVODOPA
     Indication: PARKINSON^S DISEASE
     Dosage: 2 DOSAGE FORM, PRN
     Dates: start: 2019

REACTIONS (9)
  - Ill-defined disorder [Unknown]
  - Agitation [Unknown]
  - Hallucination [Unknown]
  - Adverse event [Unknown]
  - Adverse event [Not Recovered/Not Resolved]
  - Decreased appetite [Unknown]
  - Ill-defined disorder [Unknown]
  - Bladder spasm [Recovered/Resolved]
  - Confusional state [Unknown]

NARRATIVE: CASE EVENT DATE: 202001
